FAERS Safety Report 9770130 (Version 2)
Quarter: 2013Q4

REPORT INFORMATION
  Report Type: Spontaneous
  Country: US (occurrence: US)
  Receive Date: 20131218
  Receipt Date: 20131218
  Transmission Date: 20140711
  Serious: No
  Sender: FDA-Public Use
  Company Number: US-VERTEX PHARMACEUTICALS INC-AE-2011-000888

PATIENT
  Sex: 0

DRUGS (6)
  1. INCIVEK [Suspect]
     Indication: HEPATITIS C
     Route: 048
     Dates: start: 20110729
  2. RIBAVIRIN [Concomitant]
     Indication: HEPATITIS C
     Dates: start: 20110729
  3. PEG INTERFERON [Concomitant]
     Indication: HEPATITIS C
     Dates: start: 20110729
  4. ZOFRAN [Concomitant]
     Indication: NAUSEA
     Dates: start: 20110812
  5. WELLBUTRIN [Concomitant]
     Indication: DEPRESSION
  6. ISOMETH-APAC [Concomitant]
     Indication: HEADACHE

REACTIONS (3)
  - Feeling abnormal [Recovered/Resolved]
  - Nausea [Recovered/Resolved]
  - Dysgeusia [Recovered/Resolved]
